FAERS Safety Report 8309403-6 (Version None)
Quarter: 2012Q2

REPORT INFORMATION
  Report Type: 
  Country: None (occurrence: None)
  Receive Date: 20120424
  Receipt Date: 20120424
  Transmission Date: 20120825
  Serious: Yes (Other)
  Sender: FDA-Public Use
  Company Number: None

PATIENT
  Age: 62 Year
  Sex: Female

DRUGS (1)
  1. MUCOMYST [Suspect]

REACTIONS (4)
  - BURNING SENSATION [None]
  - ACCIDENTAL EXPOSURE [None]
  - DIZZINESS [None]
  - GENERALISED ERYTHEMA [None]
